FAERS Safety Report 8265562 (Version 2)
Quarter: 2014Q1

REPORT INFORMATION
  Report Type: Spontaneous
  Country: US (occurrence: US)
  Receive Date: 20111128
  Receipt Date: 20140203
  Transmission Date: 20141002
  Serious: Yes (Hospitalization, Other)
  Sender: FDA-Public Use
  Company Number: US-ROCHE-794652

PATIENT
  Age: 16 Year
  Sex: Male
  Weight: 72.64 kg

DRUGS (1)
  1. ACCUTANE [Suspect]
     Indication: ACNE
     Route: 048
     Dates: start: 19840225, end: 19960725

REACTIONS (6)
  - Crohn^s disease [Unknown]
  - Intestinal obstruction [Unknown]
  - Depression [Unknown]
  - Lip dry [Unknown]
  - Dry skin [Unknown]
  - Blood cholesterol increased [Unknown]
